FAERS Safety Report 7740649-1 (Version None)
Quarter: 2011Q3

REPORT INFORMATION
  Report Type: 
  Country: None (occurrence: None)
  Receive Date: 20110909
  Receipt Date: 20110906
  Transmission Date: 20111222
  Serious: Yes (Other)
  Sender: FDA-Public Use
  Company Number: US-MERCK-1103USA00937

PATIENT
  Sex: Female

DRUGS (3)
  1. ALENDRONATE SODIUM [Suspect]
     Route: 048
     Dates: start: 20080101
  2. FOSAMAX [Suspect]
     Route: 048
  3. FOSAMAX [Suspect]
     Route: 048

REACTIONS (3)
  - FEMUR FRACTURE [None]
  - LOW TURNOVER OSTEOPATHY [None]
  - FRACTURE [None]
